FAERS Safety Report 8431220-7 (Version None)
Quarter: 2012Q2

REPORT INFORMATION
  Report Type: 
  Country: None (occurrence: None)
  Receive Date: 20120612
  Receipt Date: 20120608
  Transmission Date: 20120825
  Serious: Yes (Life-Threatening)
  Sender: FDA-Public Use
  Company Number: GB-AMGEN-GBRSP2012035960

PATIENT
  Age: 60 Year
  Sex: Male

DRUGS (4)
  1. FOLIC ACID [Concomitant]
  2. LENOGRASTIM [Concomitant]
     Dosage: UNK
     Dates: end: 20120515
  3. OMEPRAZOLE [Concomitant]
  4. NPLATE [Suspect]
     Indication: IDIOPATHIC THROMBOCYTOPENIC PURPURA
     Dosage: UNK
     Route: 058
     Dates: start: 20120201, end: 20120517

REACTIONS (2)
  - PLATELET COUNT INCREASED [None]
  - ISCHAEMIC STROKE [None]
